FAERS Safety Report 9782903 (Version 1)
Quarter: 2013Q4

REPORT INFORMATION
  Report Type: Spontaneous
  Country: US (occurrence: US)
  Receive Date: 20131226
  Receipt Date: 20131226
  Transmission Date: 20140711
  Serious: No
  Sender: FDA-Public Use
  Company Number: US-ABBVIE-13P-163-1061708-00

PATIENT
  Sex: Male

DRUGS (3)
  1. LUPRON DEPOT [Suspect]
     Indication: PROSTATE CANCER
  2. LUPRON DEPOT [Suspect]
     Dates: end: 20130306
  3. LUPRON DEPOT [Suspect]
     Dates: start: 20130306

REACTIONS (1)
  - Feeling abnormal [Unknown]
